FAERS Safety Report 14172768 (Version 3)
Quarter: 2018Q1

REPORT INFORMATION
  Report Type: Spontaneous
  Country: DE (occurrence: DE)
  Receive Date: 20171109
  Receipt Date: 20180116
  Transmission Date: 20180508
  Serious: Yes (Hospitalization, Other)
  Sender: FDA-Public Use
  Company Number: DE-B.I. PHARMACEUTICALS,INC./RIDGEFIELD-2017-BI-060028

PATIENT
  Age: 48 Year
  Sex: Female
  Weight: 81 kg

DRUGS (2)
  1. JARDIANCE [Suspect]
     Active Substance: EMPAGLIFLOZIN
     Indication: TYPE 2 DIABETES MELLITUS
     Route: 048
     Dates: end: 20171104
  2. DULAGLUTID [Suspect]
     Active Substance: DULAGLUTIDE
     Indication: DIABETES MELLITUS
     Route: 058
     Dates: end: 20171101

REACTIONS (17)
  - Pancreatic enzymes increased [Unknown]
  - Hepatic enzyme abnormal [Unknown]
  - Tachypnoea [Unknown]
  - Dyspnoea exertional [Unknown]
  - Abdominal pain upper [Unknown]
  - Diarrhoea [Unknown]
  - Vomiting [Unknown]
  - Blood glucose abnormal [Unknown]
  - Diabetic ketoacidosis [Recovered/Resolved]
  - Pulmonary embolism [Unknown]
  - Gastritis [Unknown]
  - Tachyarrhythmia [Unknown]
  - Nausea [Recovering/Resolving]
  - Thrombosis [Unknown]
  - Clostridium bacteraemia [Unknown]
  - Pain [Recovering/Resolving]
  - Peritonitis [Unknown]

NARRATIVE: CASE EVENT DATE: 20171104
